FAERS Safety Report 10904494 (Version 1)
Quarter: 2015Q1

REPORT INFORMATION
  Report Type: Spontaneous
  Country: US (occurrence: None)
  Receive Date: 20150304
  Receipt Date: 20150304
  Transmission Date: 20150721
  Serious: Yes (Hospitalization)
  Sender: FDA-Public Use
  Company Number: None

PATIENT
  Age: 61 Year
  Sex: Male
  Weight: 110.4 kg

DRUGS (8)
  1. 5-FLUOROURACIL (5-FU) [Suspect]
     Active Substance: FLUOROURACIL
     Dates: end: 20150217
  2. DEXAMETASONE (DEXAMETASONE) [Concomitant]
     Active Substance: DEXAMETHASONE
  3. ZYRTEC [Concomitant]
     Active Substance: CETIRIZINE HYDROCHLORIDE
  4. ELOXATIN [Suspect]
     Active Substance: OXALIPLATIN
     Dates: end: 20150217
  5. LORAZEPAM. [Concomitant]
     Active Substance: LORAZEPAM
  6. NEUPOGEN [Concomitant]
     Active Substance: FILGRASTIM
  7. LEUCOVORIN CALCIUM. [Suspect]
     Active Substance: LEUCOVORIN CALCIUM
     Dates: end: 20150217
  8. IBUPROFEN. [Concomitant]
     Active Substance: IBUPROFEN

REACTIONS (5)
  - Abasia [None]
  - Lumbar spinal stenosis [None]
  - Muscular weakness [None]
  - Dysstasia [None]
  - Back pain [None]

NARRATIVE: CASE EVENT DATE: 20150226
